FAERS Safety Report 5272395-0 (Version None)
Quarter: 2007Q1

REPORT INFORMATION
  Report Type: 
  Country: None (occurrence: None)
  Receive Date: 20070322
  Receipt Date: 20070313
  Transmission Date: 20070707
  Serious: Yes (Death, Other)
  Sender: FDA-Public Use
  Company Number: PHEH2007US03036

PATIENT
  Age: 63 Year
  Sex: Male

DRUGS (1)
  1. METHYLPHENIDATE HCL [Suspect]
     Dates: start: 20040630

REACTIONS (4)
  - CARDIAC ARREST [None]
  - HEPATITIS C [None]
  - INJURY [None]
  - SINUSITIS [None]
